FAERS Safety Report 8188180-6 (Version None)
Quarter: 2012Q1

REPORT INFORMATION
  Report Type: 
  Country: None (occurrence: None)
  Receive Date: 20120306
  Receipt Date: 20120302
  Transmission Date: 20120608
  Serious: Yes (Other)
  Sender: FDA-Public Use
  Company Number: US-PFIZER INC-2012029119

PATIENT
  Sex: Female

DRUGS (7)
  1. LYRICA [Suspect]
     Indication: FACIAL PAIN
  2. LYRICA [Suspect]
     Indication: PAIN IN EXTREMITY
     Dosage: UNK
     Dates: start: 20070101
  3. CARBAMAZEPINE [Concomitant]
     Indication: HEADACHE
     Dosage: UNK
  4. AMITRIPTYLINE [Concomitant]
     Dosage: UNK
  5. LYRICA [Suspect]
     Indication: HEADACHE
  6. TRAMADOL [Concomitant]
     Indication: PAIN
     Dosage: UNK
  7. CARBAMAZEPINE [Concomitant]
     Indication: EPILEPSY

REACTIONS (8)
  - HEARING IMPAIRED [None]
  - OROPHARYNGEAL PAIN [None]
  - HYPERSOMNIA [None]
  - EYELID DISORDER [None]
  - AUTOIMMUNE DISORDER [None]
  - INTERVERTEBRAL DISC DISORDER [None]
  - LARYNGITIS [None]
  - DRUG INEFFECTIVE [None]
